FAERS Safety Report 8229808-1 (Version None)
Quarter: 2012Q1

REPORT INFORMATION
  Report Type: 
  Country: None (occurrence: None)
  Receive Date: 20120322
  Receipt Date: 20120313
  Transmission Date: 20120608
  Serious: Yes (Hospitalization)
  Sender: FDA-Public Use
  Company Number: US-ASTRAZENECA-2012SE11868

PATIENT
  Age: 61 Year
  Sex: Female

DRUGS (2)
  1. PRILOSEC [Suspect]
     Route: 048
  2. NEXIUM [Suspect]
     Route: 048

REACTIONS (5)
  - NAUSEA [None]
  - PAIN [None]
  - DRUG DOSE OMISSION [None]
  - BRONCHOPNEUMONIA [None]
  - HIATUS HERNIA [None]
